FAERS Safety Report 19726293 (Version 1)
Quarter: 2021Q3

REPORT INFORMATION
  Report Type: Spontaneous
  Country: US (occurrence: US)
  Receive Date: 20210819
  Receipt Date: 20210819
  Transmission Date: 20211014
  Serious: Yes (Other)
  Sender: FDA-Public Use
  Company Number: US-GILEAD-2021-0544407

PATIENT
  Age: 78 Year
  Sex: Female
  Weight: 55.1 kg

DRUGS (1)
  1. TECARTUS [Suspect]
     Active Substance: BREXUCABTAGENE AUTOLEUCEL
     Indication: MANTLE CELL LYMPHOMA
     Dosage: SINGLE
     Route: 042
     Dates: start: 20210405

REACTIONS (10)
  - Immune effector cell-associated neurotoxicity syndrome [Recovered/Resolved]
  - Vomiting [Recovered/Resolved]
  - Cytokine release syndrome [Recovered/Resolved]
  - Hyperbilirubinaemia [Recovered/Resolved]
  - Encephalopathy [Recovered/Resolved]
  - Pleural effusion [Recovered/Resolved]
  - Hyponatraemia [Recovered/Resolved]
  - Neurotoxicity [Recovered/Resolved]
  - Tachycardia [Recovered/Resolved]
  - Nausea [Recovered/Resolved]

NARRATIVE: CASE EVENT DATE: 20210411
